FAERS Safety Report 13209825 (Version 1)
Quarter: 2017Q1

REPORT INFORMATION
  Report Type: Spontaneous
  Country: US (occurrence: US)
  Receive Date: 20170209
  Receipt Date: 20170209
  Transmission Date: 20170428
  Serious: Yes (Other)
  Sender: FDA-Public Use
  Company Number: None

PATIENT
  Age: 31 Year
  Sex: Female

DRUGS (2)
  1. LABETALOL [Concomitant]
     Active Substance: LABETALOL\LABETALOL HYDROCHLORIDE
  2. MAKENA [Suspect]
     Active Substance: HYDROXYPROGESTERONE CAPROATE
     Indication: COMPLICATION OF PREGNANCY
     Dosage: 250MG/ML 1ML QW IM
     Route: 030
     Dates: start: 20161115

REACTIONS (1)
  - Palpitations [None]

NARRATIVE: CASE EVENT DATE: 201701
